FAERS Safety Report 5143586-4 (Version None)
Quarter: 2006Q4

REPORT INFORMATION
  Report Type: 
  Country: None (occurrence: None)
  Receive Date: 20061103
  Receipt Date: 20061024
  Transmission Date: 20070319
  Serious: Yes (Other)
  Sender: FDA-Public Use
  Company Number: PHBS2006ES16514

PATIENT
  Age: 60 Year
  Sex: Male

DRUGS (3)
  1. HYDROCHLOROTHIAZIDE [Suspect]
     Indication: ESSENTIAL HYPERTENSION
     Dosage: 25 MG/D
     Route: 048
     Dates: start: 20060214
  2. TRILEPTAL [Suspect]
     Indication: EPILEPSY
     Dosage: 300 MG, BID
     Route: 048
  3. TRILEPTAL [Suspect]
     Dosage: 150 MG, Q12H
     Route: 048

REACTIONS (3)
  - BLOOD SODIUM DECREASED [None]
  - DRUG INTERACTION [None]
  - HYPONATRAEMIA [None]
